FAERS Safety Report 7374035-3 (Version None)
Quarter: 2011Q1

REPORT INFORMATION
  Report Type: 
  Country: None (occurrence: None)
  Receive Date: 20110325
  Receipt Date: 20101001
  Transmission Date: 20110831
  Serious: Yes (Hospitalization, Other)
  Sender: FDA-Public Use
  Company Number: US-BAYER-201013968NA

PATIENT
  Sex: Female

DRUGS (3)
  1. YASMIN [Suspect]
     Indication: PRODUCT USED FOR UNKNOWN INDICATION
     Route: 048
     Dates: start: 20040101, end: 20090101
  2. YAZ [Suspect]
     Indication: PRODUCT USED FOR UNKNOWN INDICATION
     Route: 048
     Dates: start: 20090101, end: 20090101
  3. AMOXICILLIN [Concomitant]
     Dosage: 375 MG, UNK
     Dates: end: 20090806

REACTIONS (6)
  - CHOLECYSTECTOMY [None]
  - ABDOMINAL PAIN UPPER [None]
  - GASTRITIS [None]
  - CHOLECYSTITIS CHRONIC [None]
  - INJURY [None]
  - DIARRHOEA [None]
